FAERS Safety Report 24242916 (Version 1)
Quarter: 2024Q3

REPORT INFORMATION
  Report Type: Spontaneous
  Country: DE (occurrence: DE)
  Receive Date: 20240823
  Receipt Date: 20240823
  Transmission Date: 20241016
  Serious: Yes (Death)
  Sender: RANBAXY
  Company Number: DE-SUN PHARMACEUTICAL INDUSTRIES LTD-2024RR-463798

PATIENT
  Sex: Male

DRUGS (2)
  1. SERTRALINE [Suspect]
     Active Substance: SERTRALINE HYDROCHLORIDE
     Indication: Product used for unknown indication
     Dosage: UNK, DOSISERH?HUNG AM 30.10.23
     Route: 065
     Dates: start: 20231030
  2. OLANZAPINE [Concomitant]
     Active Substance: OLANZAPINE
     Indication: Product used for unknown indication
     Dosage: 20 MILLIGRAM, DOSE INCREASE TO 20 MG
     Route: 065

REACTIONS (7)
  - Nervousness [Fatal]
  - Personality change [Fatal]
  - Sleep disorder [Fatal]
  - Disturbance in attention [Fatal]
  - Restlessness [Fatal]
  - Completed suicide [Fatal]
  - Hypophagia [Fatal]

NARRATIVE: CASE EVENT DATE: 20231109
